FAERS Safety Report 17786996 (Version 5)
Quarter: 2020Q3

REPORT INFORMATION
  Report Type: Spontaneous
  Country: JP (occurrence: JP)
  Receive Date: 20200514
  Receipt Date: 20200710
  Transmission Date: 20201102
  Serious: Yes (Other)
  Sender: FDA-Public Use
  Company Number: JP-AMGEN-JPNSP2020075761

PATIENT
  Age: 65 Year
  Sex: Male
  Weight: 47 kg

DRUGS (7)
  1. TRYPTANOL [AMITRIPTYLINE HYDROCHLORIDE] [Concomitant]
     Active Substance: AMITRIPTYLINE HYDROCHLORIDE
     Dosage: 40 MILLIGRAM, QD (BEFORE BEDTIME))
     Dates: start: 20200511, end: 20200604
  2. TERIBONE [Concomitant]
     Active Substance: TERIPARATIDE ACETATE
     Dosage: 56.5 MICROGRAM, QWK
     Dates: start: 20200604
  3. PRIMPERAN [Concomitant]
     Active Substance: METOCLOPRAMIDE HYDROCHLORIDE
     Dosage: 30 MILLIGRAM, TID
     Dates: start: 20200604
  4. CYMBALTA [Concomitant]
     Active Substance: DULOXETINE HYDROCHLORIDE
     Dosage: 20 MILLIGRAM, QD (AFTER DINNER)
     Route: 048
     Dates: start: 20200423, end: 20200506
  5. EVENITY [Suspect]
     Active Substance: ROMOSOZUMAB-AQQG
     Indication: OSTEOPOROSIS
     Dosage: 105 MILLIGRAM, QMO
     Route: 058
     Dates: start: 20200423, end: 20200423
  6. EDIROL [Concomitant]
     Active Substance: ELDECALCITOL
     Dosage: 0.5 MICROGRAM, QD (AFTER DINNER)
     Dates: start: 20200423
  7. CYMBALTA [Concomitant]
     Active Substance: DULOXETINE HYDROCHLORIDE
     Dosage: 40 MILLIGRAM, QD (AFTER DINNER)
     Route: 048
     Dates: start: 20200507, end: 20200508

REACTIONS (2)
  - Rhabdomyolysis [Recovered/Resolved]
  - Off label use [Unknown]

NARRATIVE: CASE EVENT DATE: 20200423
